FAERS Safety Report 9242150 (Version 3)
Quarter: 2013Q4

REPORT INFORMATION
  Report Type: Spontaneous
  Country: JP (occurrence: JP)
  Receive Date: 20130419
  Receipt Date: 20131226
  Transmission Date: 20140711
  Serious: Yes (Death, Other)
  Sender: FDA-Public Use
  Company Number: JP-MILLENNIUM PHARMACEUTICALS, INC.-2012-08666

PATIENT
  Sex: 0

DRUGS (7)
  1. VELCADE [Suspect]
     Indication: PLASMA CELL MYELOMA
     Dosage: 1.3 MG/ML, CYCLIC
     Route: 042
     Dates: start: 20100707, end: 20100717
  2. ITRACONAZOLE [Suspect]
     Dosage: 200 MG, UNK
     Route: 048
     Dates: start: 20100707, end: 20100723
  3. DECADRON [Suspect]
     Indication: PLASMA CELL MYELOMA
     Dosage: UNK, CYCLIC
     Route: 048
     Dates: start: 20100707, end: 20100718
  4. DOXORUBICIN HYDROCHLORIDE [Suspect]
     Indication: PLASMA CELL MYELOMA
     Dosage: UNK
     Route: 065
     Dates: start: 20090701, end: 201005
  5. VINCRISTINE [Suspect]
     Indication: PLASMA CELL MYELOMA
     Dosage: UNK
     Route: 065
     Dates: start: 20090701, end: 201005
  6. TAKEPRON [Concomitant]
     Dosage: 15 MG, UNK
     Route: 048
     Dates: start: 20100602
  7. ZYLORIC [Concomitant]
     Dosage: 200 MG, UNK
     Route: 048

REACTIONS (4)
  - Drug interaction [Unknown]
  - Plasma cell myeloma [Fatal]
  - Platelet count decreased [Recovered/Resolved]
  - Neuropathy peripheral [Unknown]
